FAERS Safety Report 11690344 (Version 1)
Quarter: 2015Q4

REPORT INFORMATION
  Report Type: Report from Study
  Country: US (occurrence: US)
  Receive Date: 20151102
  Receipt Date: 20151102
  Transmission Date: 20160304
  Serious: No
  Sender: FDA-Public Use
  Company Number: US-AMGEN-USASL2015113682

PATIENT
  Sex: Female

DRUGS (1)
  1. ENBREL [Suspect]
     Active Substance: ETANERCEPT
     Indication: PRODUCT USED FOR UNKNOWN INDICATION
     Dosage: UNK UNK, UNK
     Route: 065
     Dates: start: 2010

REACTIONS (4)
  - Injection site pruritus [Unknown]
  - Musculoskeletal stiffness [Not Recovered/Not Resolved]
  - Injection site erythema [Unknown]
  - Injection site hypersensitivity [Unknown]
